FAERS Safety Report 8607228 (Version 3)
Quarter: 2013Q4

REPORT INFORMATION
  Report Type: Spontaneous
  Country: US (occurrence: US)
  Receive Date: 20120611
  Receipt Date: 20131129
  Transmission Date: 20140711
  Serious: Yes (Hospitalization)
  Sender: FDA-Public Use
  Company Number: US-ASTRAZENECA-2012SE35737

PATIENT
  Age: 21922 Day
  Sex: Female

DRUGS (24)
  1. NEXIUM [Suspect]
     Indication: GASTROOESOPHAGEAL REFLUX DISEASE
     Route: 048
     Dates: start: 1995
  2. NEXIUM [Suspect]
     Indication: GASTROINTESTINAL DISORDER
     Route: 048
     Dates: start: 1995
  3. NEXIUM [Suspect]
     Indication: ABDOMINAL PAIN UPPER
     Route: 048
     Dates: start: 1995
  4. NEXIUM [Suspect]
     Indication: GASTROOESOPHAGEAL REFLUX DISEASE
     Route: 048
     Dates: start: 20100618
  5. NEXIUM [Suspect]
     Indication: GASTROINTESTINAL DISORDER
     Route: 048
     Dates: start: 20100618
  6. NEXIUM [Suspect]
     Indication: ABDOMINAL PAIN UPPER
     Route: 048
     Dates: start: 20100618
  7. PEPTO BISMOL [Concomitant]
  8. ROLAIDS [Concomitant]
  9. ALKA SELTZER [Concomitant]
  10. MILK OF MAGNESIA [Concomitant]
  11. TUMS MYLANTA [Concomitant]
  12. SIMVASTATIN [Concomitant]
     Indication: BLOOD CHOLESTEROL ABNORMAL
     Dates: start: 20120823
  13. LORATADINE [Concomitant]
     Indication: SEASONAL ALLERGY
     Dates: start: 20121129
  14. HYDROCODONE- APAP [Concomitant]
     Indication: PAIN
     Dosage: 5/325  ONE TABLET BY MOUTH EVERY FOUR HOUR AS NEEDED
     Route: 048
     Dates: start: 20100328
  15. FLUTICASONE [Concomitant]
     Indication: ALLERGIC SINUSITIS
  16. LISINOPRIL [Concomitant]
     Dates: start: 20100707
  17. PROPOXYPHENE [Concomitant]
     Indication: PAIN IN EXTREMITY
  18. ACETAMINOPHEN [Concomitant]
     Dates: start: 20130215
  19. ANASTROZOLE [Concomitant]
     Dates: start: 20120227
  20. TRIAMTERENE/ HCTZ [Concomitant]
     Dosage: 37.5/ 25 MG ONE CAPSULE EVERY MORNING
     Dates: start: 20100409
  21. LISINOPRIL- HCT [Concomitant]
     Dosage: 20/12.5MG ONE TABLET DAILY
     Dates: start: 20120823
  22. FEXOFENADINE HCL [Concomitant]
     Dates: start: 20101026
  23. AMOXICILLIN [Concomitant]
     Dates: start: 20100521
  24. DICYCLOMINE [Concomitant]
     Dates: start: 20120411

REACTIONS (23)
  - Breast cancer female [Unknown]
  - Gastrointestinal infection [Unknown]
  - Hepatic steatosis [Unknown]
  - Bronchitis [Unknown]
  - Osteoporosis [Unknown]
  - Multiple fractures [Unknown]
  - Foot fracture [Unknown]
  - Cataract [Unknown]
  - Musculoskeletal stiffness [Unknown]
  - Fall [Unknown]
  - Affective disorder [Unknown]
  - Mental impairment [Unknown]
  - Arthritis [Unknown]
  - Bone pain [Unknown]
  - Calcium deficiency [Unknown]
  - Chronic obstructive pulmonary disease [Unknown]
  - Rheumatoid arthritis [Unknown]
  - Liver disorder [Unknown]
  - Vitamin D deficiency [Unknown]
  - Tinnitus [Unknown]
  - Infection [Unknown]
  - Abdominal pain upper [Unknown]
  - Depression [Unknown]
